FAERS Safety Report 8809955 (Version 3)
Quarter: 2013Q1

REPORT INFORMATION
  Report Type: Report from Study
  Country: JP (occurrence: JP)
  Receive Date: 20120926
  Receipt Date: 20130115
  Transmission Date: 20140127
  Serious: Yes (Hospitalization)
  Sender: FDA-Public Use
  Company Number: JP-009507513-2012SP028065

PATIENT
  Age: 67 Year
  Sex: Male
  Weight: 72 kg

DRUGS (17)
  1. PEGINTRON [Suspect]
     Indication: CHRONIC HEPATITIS C
     Dosage: 1.4 MICROGRAM PER KILOGRAM, QW
     Route: 058
     Dates: start: 20120309, end: 20120509
  2. PEGINTRON [Suspect]
     Dosage: 0.75 MICROGRAM PER KILOGRAM, QW
     Route: 058
     Dates: start: 20120510, end: 20120513
  3. PEGINTRON [Suspect]
     Dosage: 50 MICROGRAM, QW
     Route: 058
     Dates: start: 20120531, end: 20120628
  4. PEGINTRON [Suspect]
     Dosage: 100 MICROGRAM, QW
     Route: 058
     Dates: start: 20120629, end: 20120830
  5. REBETOL [Suspect]
     Indication: CHRONIC HEPATITIS C
     Dosage: 400 MG, QD
     Route: 048
     Dates: start: 20120309, end: 20120502
  6. REBETOL [Suspect]
     Dosage: 200 MG, QD
     Route: 048
     Dates: start: 20120503, end: 20120513
  7. REBETOL [Suspect]
     Dosage: 200 MG, QD
     Route: 048
     Dates: start: 20120531, end: 20120704
  8. REBETOL [Suspect]
     Dosage: 400 MG, QD
     Route: 048
     Dates: start: 20120705, end: 20120906
  9. TELAVIC [Suspect]
     Indication: CHRONIC HEPATITIS C
     Dosage: 1500MG, QD
     Route: 048
     Dates: start: 20120309, end: 20120513
  10. URSO [Concomitant]
     Indication: CHRONIC HEPATITIS C
     Dosage: UPDATE(30MAY2012)FORMULATION:POR
     Route: 048
  11. ALLOPURINOL [Concomitant]
     Dosage: 200 MG, QD
     Route: 048
     Dates: start: 20120324
  12. TAKEPRON [Concomitant]
     Indication: PROPHYLAXIS
     Dosage: 15 MG, QD
     Route: 048
     Dates: end: 20120509
  13. TAKEPRON [Concomitant]
     Dosage: 30 MG, QD
     Route: 048
     Dates: start: 20120510
  14. NORVASC [Concomitant]
     Indication: HYPERTENSION
     Dosage: 5MG QD FORMULATION : POR
     Route: 048
  15. HARNAL [Concomitant]
     Indication: BENIGN PROSTATIC HYPERPLASIA
     Dosage: 0.2MG QD , FORMULATION:POR
     Route: 048
  16. TANATRIL [Concomitant]
     Indication: HYPERTENSION
     Dosage: 2.5MG,QD
     Route: 048
  17. ZYLORIC [Concomitant]
     Indication: BLOOD URIC ACID INCREASED
     Dosage: UNK UNK, UNKNOWN
     Route: 065
     Dates: start: 20120323

REACTIONS (1)
  - Pleural effusion [Recovering/Resolving]
